FAERS Safety Report 13031863 (Version 3)
Quarter: 2017Q1

REPORT INFORMATION
  Report Type: Spontaneous
  Country: US (occurrence: US)
  Receive Date: 20161215
  Receipt Date: 20170124
  Transmission Date: 20170428
  Serious: Yes (Other)
  Sender: FDA-Public Use
  Company Number: US-PFIZER INC-2016501313

PATIENT
  Age: 69 Year
  Sex: Male

DRUGS (5)
  1. VITAMIN D [Concomitant]
     Active Substance: CHOLECALCIFEROL
     Dosage: UNK
  2. VITAMIN C [Concomitant]
     Active Substance: ASCORBIC ACID
     Dosage: UNK
  3. VITAMIN B12 [Concomitant]
     Active Substance: CYANOCOBALAMIN
     Dosage: UNK
  4. SUTENT [Suspect]
     Active Substance: SUNITINIB MALATE
     Indication: METASTATIC RENAL CELL CARCINOMA
     Dosage: 50 MG, CYCLIC (TAKEN DAILY, 2 WEEKS ON/1 WEEK OFF)
     Route: 048
     Dates: start: 20161025
  5. LEVOTHYROXINE. [Concomitant]
     Active Substance: LEVOTHYROXINE
     Dosage: UNK

REACTIONS (13)
  - Sensitivity of teeth [Unknown]
  - Sciatica [Not Recovered/Not Resolved]
  - Insomnia [Not Recovered/Not Resolved]
  - Arthralgia [Unknown]
  - Oral pain [Recovering/Resolving]
  - Gait disturbance [Not Recovered/Not Resolved]
  - Glossodynia [Recovering/Resolving]
  - Joint stiffness [Unknown]
  - Skin fissures [Unknown]
  - Toothache [Unknown]
  - Abasia [Not Recovered/Not Resolved]
  - Skin exfoliation [Unknown]
  - Skin lesion [Recovering/Resolving]
